FAERS Safety Report 15751554 (Version 2)
Quarter: 2019Q1

REPORT INFORMATION
  Report Type: Spontaneous
  Country: US (occurrence: US)
  Receive Date: 20181221
  Receipt Date: 20190114
  Transmission Date: 20190417
  Serious: No
  Sender: FDA-Public Use
  Company Number: US-B.I. PHARMACEUTICALS,INC./RIDGEFIELD-2018-BI-060452

PATIENT
  Sex: Female

DRUGS (2)
  1. JARDIANCE [Suspect]
     Active Substance: EMPAGLIFLOZIN
     Indication: TYPE 2 DIABETES MELLITUS
     Dosage: 1 TABLET DAILY;  FORMULATION: TABLET; ? ADMINISTRATION- NR(NOT REPORTED) ?ACTION- NOT REPORTED
     Route: 065
     Dates: start: 201812
  2. HUMALOG [Concomitant]
     Active Substance: INSULIN LISPRO
     Indication: TYPE 2 DIABETES MELLITUS
     Dosage: UP TO 4 TIMES A DAY;  FORMULATION: SUBCUTANEOUS;
     Route: 058

REACTIONS (1)
  - Blood glucose abnormal [Unknown]
